FAERS Safety Report 7005388-3 (Version None)
Quarter: 2010Q3

REPORT INFORMATION
  Report Type: 
  Country: None (occurrence: None)
  Receive Date: 20100921
  Receipt Date: 20100914
  Transmission Date: 20110219
  Serious: Yes (Other)
  Sender: FDA-Public Use
  Company Number: JP-ROCHE-704910

PATIENT
  Sex: Male

DRUGS (10)
  1. TOCILIZUMAB [Suspect]
     Indication: RHEUMATOID ARTHRITIS
     Route: 041
     Dates: start: 20090601, end: 20090901
  2. TOCILIZUMAB [Suspect]
     Route: 041
     Dates: start: 20091027, end: 20091027
  3. TOCILIZUMAB [Suspect]
     Route: 041
     Dates: start: 20091124, end: 20091124
  4. TOCILIZUMAB [Suspect]
     Route: 041
     Dates: start: 20091222, end: 20091222
  5. TOCILIZUMAB [Suspect]
     Route: 041
     Dates: start: 20100119, end: 20100119
  6. TOCILIZUMAB [Suspect]
     Route: 041
     Dates: start: 20100216, end: 20100216
  7. METOLATE [Concomitant]
     Route: 048
     Dates: start: 20091222
  8. PREDNISOLONE [Concomitant]
     Dosage: FORM: PERORAL AGENT.
     Route: 048
     Dates: start: 20100118
  9. PREDNISOLONE [Concomitant]
     Route: 048
     Dates: start: 20100119
  10. NEUROTROPIN [Concomitant]
     Route: 048

REACTIONS (2)
  - PNEUMONIA [None]
  - RENAL FAILURE [None]
